FAERS Safety Report 11819462 (Version 1)
Quarter: 2015Q4

REPORT INFORMATION
  Report Type: Spontaneous
  Country: US (occurrence: None)
  Receive Date: 20151209
  Receipt Date: 20151209
  Transmission Date: 20160305
  Serious: Yes (Life-Threatening)
  Sender: FDA-Public Use
  Company Number: None

PATIENT
  Age: 45 Year
  Sex: Female

DRUGS (1)
  1. GLEEVEC [Suspect]
     Active Substance: IMATINIB MESYLATE
     Indication: NEOPLASM
     Route: 048
     Dates: start: 20151111, end: 20151111

REACTIONS (3)
  - Asthma [None]
  - Hypersensitivity [None]
  - Wheezing [None]

NARRATIVE: CASE EVENT DATE: 20151111
